FAERS Safety Report 20357780 (Version 1)
Quarter: 2022Q1

REPORT INFORMATION
  Report Type: Spontaneous
  Country: SE (occurrence: SE)
  Receive Date: 20220120
  Receipt Date: 20220120
  Transmission Date: 20220423
  Serious: Yes (Congenital Anomaly)
  Sender: FDA-Public Use
  Company Number: None

PATIENT

DRUGS (1)
  1. PROGESTERONE [Suspect]
     Active Substance: PROGESTERONE
     Indication: Product used for unknown indication
     Dosage: 100 MG 1 TABLET 3 TIMES DAILY
     Route: 064
     Dates: start: 20210520, end: 20210622

REACTIONS (1)
  - Anotia [Not Recovered/Not Resolved]

NARRATIVE: CASE EVENT DATE: 20210520
